FAERS Safety Report 4954148-3 (Version None)
Quarter: 2006Q1

REPORT INFORMATION
  Report Type: 
  Country: None (occurrence: None)
  Receive Date: 20060324
  Receipt Date: 20060324
  Transmission Date: 20060701
  Serious: Yes (Hospitalization)
  Sender: FDA-Public Use
  Company Number: None

PATIENT
  Sex: Female
  Weight: 117.9352 kg

DRUGS (1)
  1. CEFTRIAXONE [Suspect]
     Indication: SINUSITIS
     Dosage: 1 GM Q 24 H IV
     Route: 042
     Dates: start: 20060317, end: 20060330

REACTIONS (2)
  - DYSPNOEA [None]
  - RASH GENERALISED [None]
